FAERS Safety Report 20175102 (Version 4)
Quarter: 2022Q2

REPORT INFORMATION
  Report Type: Other
  Country: JP (occurrence: JP)
  Receive Date: 20211213
  Receipt Date: 20220623
  Transmission Date: 20220721
  Serious: Yes (Other)
  Sender: FDA-Public Use
  Company Number: JP-CHUGAI-2021030182

PATIENT
  Age: 67 Year
  Sex: Male
  Weight: 68.1 kg

DRUGS (11)
  1. ATEZOLIZUMAB [Suspect]
     Active Substance: ATEZOLIZUMAB
     Indication: Small cell lung cancer extensive stage
     Dosage: 1200 MILLIGRAM, ONCE/3WEEKS
     Route: 041
     Dates: start: 20210929, end: 20211110
  2. CARBOPLATIN [Suspect]
     Active Substance: CARBOPLATIN
     Indication: Small cell lung cancer extensive stage
     Dosage: 470 MILLIGRAM, SINGLE
     Route: 041
     Dates: start: 20210929, end: 20210929
  3. CARBOPLATIN [Suspect]
     Active Substance: CARBOPLATIN
     Dosage: 450 MILLIGRAM, SINGLE
     Route: 041
     Dates: start: 20211020, end: 20211020
  4. CARBOPLATIN [Suspect]
     Active Substance: CARBOPLATIN
     Dosage: 460 MILLIGRAM, SINGLE
     Route: 041
     Dates: start: 20211110, end: 20211110
  5. CARBOPLATIN [Suspect]
     Active Substance: CARBOPLATIN
     Dosage: 420 MILLIGRAM, ONCE/3WEEKS
     Route: 041
     Dates: start: 20220112, end: 20220222
  6. ETOPOSIDE [Suspect]
     Active Substance: ETOPOSIDE
     Indication: Small cell lung cancer extensive stage
     Dosage: 170 MILLIGRAM
     Route: 041
     Dates: start: 20210929
  7. ETOPOSIDE [Suspect]
     Active Substance: ETOPOSIDE
     Dosage: 150 MG, QD
     Route: 041
     Dates: start: 20211020, end: 20211022
  8. ETOPOSIDE [Suspect]
     Active Substance: ETOPOSIDE
     Dosage: 150 MILLIGRAM, QD
     Route: 041
     Dates: start: 20211110, end: 20211112
  9. ETOPOSIDE [Suspect]
     Active Substance: ETOPOSIDE
     Dosage: 150 MILLIGRAM, QD
     Route: 041
     Dates: start: 20220112, end: 20220114
  10. ETOPOSIDE [Suspect]
     Active Substance: ETOPOSIDE
     Dosage: 150 MILLIGRAM, QD
     Route: 041
     Dates: start: 20220202, end: 20220204
  11. ETOPOSIDE [Suspect]
     Active Substance: ETOPOSIDE
     Dosage: 150 MILLIGRAM, QD
     Route: 041
     Dates: start: 20220222, end: 20220224

REACTIONS (3)
  - Pain in extremity [Not Recovered/Not Resolved]
  - Neutrophil count decreased [Recovered/Resolved]
  - Platelet count decreased [Recovered/Resolved]

NARRATIVE: CASE EVENT DATE: 20211008
